FAERS Safety Report 12517230 (Version 1)
Quarter: 2016Q2

REPORT INFORMATION
  Report Type: Spontaneous
  Country: SE (occurrence: SE)
  Receive Date: 20160630
  Receipt Date: 20160630
  Transmission Date: 20160815
  Serious: Yes (Hospitalization, Disabling)
  Sender: FDA-Public Use
  Company Number: SE-PFIZER INC-2016321216

PATIENT
  Age: 19 Year
  Sex: Female

DRUGS (1)
  1. SYNARELA [Suspect]
     Active Substance: NAFARELIN ACETATE
     Indication: ENDOMETRIOSIS
     Dosage: UNK
     Dates: start: 200812, end: 200906

REACTIONS (1)
  - Gastrointestinal hypomotility [Not Recovered/Not Resolved]

NARRATIVE: CASE EVENT DATE: 2008
